FAERS Safety Report 6130765-2 (Version None)
Quarter: 2009Q1

REPORT INFORMATION
  Report Type: 
  Country: None (occurrence: None)
  Receive Date: 20090323
  Receipt Date: 20090314
  Transmission Date: 20090719
  Serious: Yes (Other)
  Sender: FDA-Public Use
  Company Number: CHPA2009US06817

PATIENT
  Age: 61 Year
  Sex: Male
  Weight: 86.2 kg

DRUGS (1)
  1. EXCEDRIN (MIGRAINE) [Suspect]
     Indication: PAIN
     Dosage: 20-25 DF, IN 12 HOURS, ORAL
     Route: 048
     Dates: start: 20090201, end: 20090201

REACTIONS (3)
  - ALCOHOL USE [None]
  - CONVULSION [None]
  - OVERDOSE [None]
